FAERS Safety Report 7982021-5 (Version None)
Quarter: 2011Q4

REPORT INFORMATION
  Report Type: 
  Country: None (occurrence: None)
  Receive Date: 20111212
  Receipt Date: 20111205
  Transmission Date: 20120403
  Serious: Yes (Hospitalization, Other)
  Sender: FDA-Public Use
  Company Number: 2010SP053045

PATIENT
  Age: 32 Year
  Sex: Female
  Weight: 72.5755 kg

DRUGS (3)
  1. NUVARING [Suspect]
     Indication: CONTRACEPTION
     Dates: start: 20021001
  2. DARVOCET [Suspect]
     Indication: PRODUCT USED FOR UNKNOWN INDICATION
  3. CODEINE SULFATE [Suspect]
     Indication: PRODUCT USED FOR UNKNOWN INDICATION

REACTIONS (45)
  - THROMBOSIS [None]
  - ANXIETY [None]
  - GASTROINTESTINAL DISORDER [None]
  - SYNCOPE [None]
  - SWELLING FACE [None]
  - PULMONARY MASS [None]
  - KERATITIS [None]
  - ABORTION MISSED [None]
  - SMEAR CERVIX ABNORMAL [None]
  - VARICOSE VEIN [None]
  - ASTHMA [None]
  - MENORRHAGIA [None]
  - HYPERCOAGULATION [None]
  - PULMONARY INFARCTION [None]
  - UTERINE LEIOMYOMA [None]
  - EMOTIONAL DISTRESS [None]
  - PULMONARY EMBOLISM [None]
  - CALCINOSIS [None]
  - CONTUSION [None]
  - URTICARIA [None]
  - DEEP VEIN THROMBOSIS [None]
  - BACK PAIN [None]
  - LOSS OF CONSCIOUSNESS [None]
  - ATELECTASIS [None]
  - SCAR [None]
  - DRUG LEVEL BELOW THERAPEUTIC [None]
  - RECTAL HAEMORRHAGE [None]
  - LYMPHOMA [None]
  - PNEUMONIA [None]
  - FALL [None]
  - HEADACHE [None]
  - CHRONIC OBSTRUCTIVE PULMONARY DISEASE [None]
  - INTERNATIONAL NORMALISED RATIO DECREASED [None]
  - HEPATIC STEATOSIS [None]
  - MATERNAL EXPOSURE DURING PREGNANCY [None]
  - BRONCHITIS [None]
  - MUSCLE STRAIN [None]
  - COLPOSCOPY ABNORMAL [None]
  - ANAL FISTULA [None]
  - CYST [None]
  - SOFT TISSUE DISORDER [None]
  - MUSCULOSKELETAL CHEST PAIN [None]
  - LIGAMENT SPRAIN [None]
  - EYE PRURITUS [None]
  - EYE SWELLING [None]
